FAERS Safety Report 6383653-0 (Version None)
Quarter: 2009Q4

REPORT INFORMATION
  Report Type: 
  Country: None (occurrence: None)
  Receive Date: 20091001
  Receipt Date: 20090924
  Transmission Date: 20100525
  Serious: Yes (Other)
  Sender: FDA-Public Use
  Company Number: KE-JNJFOC-20090907411

PATIENT
  Age: 43 Year
  Sex: Female

DRUGS (8)
  1. TAVANIC [Suspect]
     Indication: LUNG INFECTION
     Route: 065
     Dates: start: 20090627, end: 20090627
  2. PARACETAMOL [Suspect]
     Indication: PAIN
     Route: 065
  3. IBUPROFEN [Suspect]
     Route: 065
  4. IBUPROFEN [Suspect]
     Indication: PAIN
     Route: 065
  5. CEFUROXIME [Concomitant]
     Route: 065
  6. DESLORATADINE [Concomitant]
     Route: 065
  7. FLUTICASONE [Concomitant]
     Route: 065
  8. DIFLUCAN [Concomitant]
     Route: 065

REACTIONS (3)
  - MUSCLE DISORDER [None]
  - MYALGIA [None]
  - PNEUMONITIS [None]
